FAERS Safety Report 17289282 (Version 1)
Quarter: 2020Q1

REPORT INFORMATION
  Report Type: Spontaneous
  Country: BR (occurrence: BR)
  Receive Date: 20200120
  Receipt Date: 20200120
  Transmission Date: 20200409
  Serious: Yes (Life-Threatening)
  Sender: FDA-Public Use
  Company Number: BR-009507513-2001BRA006463

PATIENT
  Age: 75 Year
  Weight: 58.5 kg

DRUGS (9)
  1. NASONEX [Suspect]
     Active Substance: MOMETASONE FUROATE
     Indication: NASAL CONGESTION
  2. CRESTOR [Concomitant]
     Active Substance: ROSUVASTATIN CALCIUM
     Indication: BLOOD CHOLESTEROL INCREASED
     Dosage: 1 TABLET EVERY TWO DAYS
     Route: 048
     Dates: start: 2015
  3. COZAAR [Suspect]
     Active Substance: LOSARTAN POTASSIUM
     Indication: HYPERTENSION
     Dosage: 1 TABLET BY THE MORNING AN 1 TABLET AT NIGHT
     Route: 048
     Dates: start: 2015
  4. DESALEX [Suspect]
     Active Substance: DESLORATADINE
     Indication: NASAL CONGESTION
     Dosage: 2 TABLETS PER DAY FOR 5 DAYS
     Route: 048
     Dates: start: 201909
  5. DESALEX [Suspect]
     Active Substance: DESLORATADINE
     Dosage: 2 TABLETS PER DAY FOR 5 DAYS
     Route: 048
     Dates: start: 20200114
  6. ASPIRINA PREVENT [Concomitant]
     Active Substance: ASPIRIN
     Dosage: 1 TABLET PER DAY
     Route: 048
  7. DESLORATADINE. [Concomitant]
     Active Substance: DESLORATADINE
  8. DESALEX [Suspect]
     Active Substance: DESLORATADINE
     Indication: SINUSITIS
     Dosage: 2 TABLETS PER DAY FOR 5 DAYS
     Route: 048
     Dates: start: 201901, end: 2019
  9. NASONEX [Suspect]
     Active Substance: MOMETASONE FUROATE
     Indication: SINUSITIS
     Dosage: 1 SPRAY IN EACH NOSTRIL PER DAY
     Route: 048
     Dates: start: 201901, end: 201903

REACTIONS (13)
  - Dry mouth [Unknown]
  - Fatigue [Unknown]
  - Blood pressure abnormal [Unknown]
  - Diarrhoea [Unknown]
  - Flatulence [Unknown]
  - Renal pain [Unknown]
  - Nausea [Unknown]
  - Vomiting [Unknown]
  - Anxiety [Unknown]
  - Cold sweat [Unknown]
  - Abdominal distension [Unknown]
  - Insomnia [Unknown]
  - Tachycardia [Unknown]

NARRATIVE: CASE EVENT DATE: 20200114
